FAERS Safety Report 16576725 (Version 1)
Quarter: 2019Q3

REPORT INFORMATION
  Report Type: Spontaneous
  Country: DE (occurrence: DE)
  Receive Date: 20190716
  Receipt Date: 20190716
  Transmission Date: 20191004
  Serious: Yes (Hospitalization)
  Sender: FDA-Public Use
  Company Number: DE-TEVA-2019-DE-1076642

PATIENT
  Age: 67 Year
  Sex: Male

DRUGS (7)
  1. MIRTAZAPINE. [Suspect]
     Active Substance: MIRTAZAPINE
     Dosage: 30 MG, 0-0-0-1
  2. METOCLOPRAMID [Concomitant]
     Active Substance: METOCLOPRAMIDE
     Dosage: NK MG, 30-0-0-0, TROPFEN
  3. PANTOPRAZOLE [Suspect]
     Active Substance: PANTOPRAZOLE
     Dosage: 40 MG, 1-0-1-0
  4. SULPIRID [Suspect]
     Active Substance: SULPIRIDE
     Dosage: 50 MG, 1-1-0-0
  5. SIMVASTATIN. [Concomitant]
     Active Substance: SIMVASTATIN
     Dosage: NK MG, NK
  6. ZOLPIDEM [Suspect]
     Active Substance: ZOLPIDEM TARTRATE
     Dosage: 10 MG, 0-0-0-1
  7. TILIDIN/NALOXON [Suspect]
     Active Substance: NALOXONE HYDROCHLORIDE\TILIDINE HYDROCHLORIDE
     Dosage: 100|8 MG, 1-0-1-0

REACTIONS (5)
  - Nausea [Unknown]
  - Product prescribing error [Unknown]
  - Product administration error [Unknown]
  - Vomiting [Unknown]
  - Abdominal pain upper [Unknown]
